FAERS Safety Report 8171546-8 (Version None)
Quarter: 2012Q1

REPORT INFORMATION
  Report Type: 
  Country: None (occurrence: None)
  Receive Date: 20120228
  Receipt Date: 20120215
  Transmission Date: 20120608
  Serious: Yes (Hospitalization, Other)
  Sender: FDA-Public Use
  Company Number: FR-CELGENEUS-056-C5013-12010364

PATIENT
  Sex: Male

DRUGS (11)
  1. DEXAMETHASONE [Suspect]
     Dosage: 20 MILLIGRAM
     Route: 065
     Dates: start: 20111223, end: 20120118
  2. ZOFRAN [Concomitant]
     Dosage: 16 MILLIGRAM
     Route: 048
     Dates: start: 20091020
  3. LENALIDOMIDE [Suspect]
     Dosage: 25 MILLIGRAM
     Route: 048
     Dates: start: 20111223, end: 20120113
  4. DEXAMETHASONE [Suspect]
     Indication: MULTIPLE MYELOMA
     Dosage: 20 MILLIGRAM
     Route: 065
     Dates: start: 20090505
  5. LENALIDOMIDE [Suspect]
     Indication: MULTIPLE MYELOMA
     Dosage: 25 MILLIGRAM
     Route: 048
     Dates: start: 20090505
  6. CEFUROXIME [Concomitant]
     Indication: BRONCHITIS
     Dosage: 1000 MILLIGRAM
     Route: 048
     Dates: start: 20100823
  7. LOVENOX [Concomitant]
     Indication: THROMBOSIS PROPHYLAXIS
     Dosage: .4 MILLILITER
     Route: 058
     Dates: start: 20100921
  8. SOTALOL HCL [Concomitant]
     Indication: ATRIAL FLUTTER
     Dosage: 80 MILLIGRAM
     Route: 048
     Dates: start: 20090627
  9. VALACYCLOVIR HYDROCHLORIDE [Concomitant]
     Indication: PROPHYLAXIS
     Dosage: 1000 MILLIGRAM
     Route: 048
     Dates: start: 20090505
  10. PRAVASTATIN [Concomitant]
     Dosage: 40 MILLIGRAM
     Route: 048
     Dates: start: 20070101
  11. CALCIUM CARBONATE [Concomitant]
     Indication: PROPHYLAXIS
     Dosage: 500 MILLIGRAM
     Route: 048
     Dates: start: 20090901

REACTIONS (1)
  - COLON CANCER METASTATIC [None]
